FAERS Safety Report 25547256 (Version 2)
Quarter: 2025Q3

REPORT INFORMATION
  Report Type: Spontaneous
  Country: CA (occurrence: CA)
  Receive Date: 20250714
  Receipt Date: 20250723
  Transmission Date: 20251020
  Serious: Yes (Life-Threatening, Hospitalization, Disabling, Congenital Anomaly, Other)
  Sender: AUROBINDO
  Company Number: CA-MLMSERVICE-20250625-PI554225-00121-1

PATIENT
  Age: 80 Year
  Sex: Male

DRUGS (11)
  1. DILTIAZEM [Interacting]
     Active Substance: DILTIAZEM
     Indication: Atrial fibrillation
     Dosage: 480 MILLIGRAM, ONCE A DAY (WHICH HE HAD BEEN STABLE ON FOR OVER 6 YEARS)
     Route: 065
  2. ENZALUTAMIDE [Interacting]
     Active Substance: ENZALUTAMIDE
     Indication: Prostate cancer metastatic
     Route: 065
  3. METOPROLOL [Suspect]
     Active Substance: METOPROLOL
     Indication: Cardiac failure
     Dosage: 75 MILLIGRAM, TWO TIMES A DAY
     Route: 065
  4. METOPROLOL [Suspect]
     Active Substance: METOPROLOL
     Indication: Arrhythmia induced cardiomyopathy
  5. METOPROLOL [Suspect]
     Active Substance: METOPROLOL
     Indication: Drug interaction
  6. SPIRONOLACTONE [Suspect]
     Active Substance: SPIRONOLACTONE
     Indication: Cardiac failure
     Route: 065
  7. SPIRONOLACTONE [Suspect]
     Active Substance: SPIRONOLACTONE
     Indication: Arrhythmia induced cardiomyopathy
  8. SPIRONOLACTONE [Suspect]
     Active Substance: SPIRONOLACTONE
     Indication: Drug interaction
  9. ESCITALOPRAM [Concomitant]
     Active Substance: ESCITALOPRAM OXALATE
     Indication: Atrial fibrillation
     Dosage: 160 MILLIGRAM, ONCE A DAY
     Route: 065
  10. FUROSEMIDE [Concomitant]
     Active Substance: FUROSEMIDE
     Indication: Atrial fibrillation
     Dosage: 20 MILLIGRAM, ONCE A DAY (WHICH HE HAD BEEN STABLE ON FOR OVER 6 YEARS)
     Route: 065
  11. DABIGATRAN [Concomitant]
     Active Substance: DABIGATRAN
     Indication: Atrial fibrillation
     Dosage: 20 MILLIGRAM, ONCE A DAY (WHICH HE HAD BEEN STABLE ON FOR OVER 6 YEARS)
     Route: 065

REACTIONS (5)
  - Drug interaction [Recovered/Resolved]
  - Cardiac failure [Recovered/Resolved]
  - Arrhythmia induced cardiomyopathy [Recovered/Resolved]
  - Sinus bradycardia [Recovered/Resolved]
  - Cardiogenic shock [Recovered/Resolved]
